FAERS Safety Report 7821784-6 (Version None)
Quarter: 2011Q4

REPORT INFORMATION
  Report Type: 
  Country: None (occurrence: None)
  Receive Date: 20111018
  Receipt Date: 20110218
  Transmission Date: 20120403
  Serious: No
  Sender: FDA-Public Use
  Company Number: US-ASTRAZENECA-2011SE09686

PATIENT
  Age: 63 Year
  Sex: Female

DRUGS (2)
  1. SYMBICORT [Suspect]
     Route: 055
  2. WATER PILL [Concomitant]

REACTIONS (4)
  - SWELLING FACE [None]
  - HYPOACUSIS [None]
  - OEDEMA PERIPHERAL [None]
  - DIABETES MELLITUS [None]
